FAERS Safety Report 6031794-X (Version None)
Quarter: 2009Q1

REPORT INFORMATION
  Report Type: 
  Country: None (occurrence: None)
  Receive Date: 20090108
  Receipt Date: 20081217
  Transmission Date: 20090719
  Serious: No
  Sender: FDA-Public Use
  Company Number: US-BAYER-200814942BCC

PATIENT
  Age: 89 Year
  Sex: Female
  Weight: 64 kg

DRUGS (3)
  1. ALEVE [Suspect]
     Indication: ARTHRITIS
     Dosage: TOTAL DAILY DOSE: 440 MG  UNIT DOSE: 220 MG
     Dates: start: 20081217
  2. COZAAR [Concomitant]
  3. ASPIRIN [Concomitant]

REACTIONS (1)
  - ARTHRALGIA [None]
